FAERS Safety Report 8553705-5 (Version None)
Quarter: 2012Q3

REPORT INFORMATION
  Report Type: 
  Country: None (occurrence: None)
  Receive Date: 20120719
  Receipt Date: 20120705
  Transmission Date: 20120928
  Serious: Yes (Hospitalization, Other)
  Sender: FDA-Public Use
  Company Number: CIP11000122

PATIENT
  Age: 64 Year
  Sex: Female

DRUGS (13)
  1. ACTONEL [Suspect]
     Dosage: ORAL
     Route: 048
     Dates: start: 20050801, end: 20060801
  2. BONIVA [Suspect]
     Indication: OSTEOPOROSIS
     Dosage: 150 MG ONCE MONTHLY, ORAL
     Route: 048
     Dates: start: 20060829
  3. ULTRAM [Concomitant]
  4. LYRICA [Concomitant]
  5. ADIPEX [Concomitant]
  6. PROZAC [Concomitant]
  7. FORTEO [Concomitant]
  8. LANTUS [Concomitant]
  9. LASIX [Concomitant]
  10. PLAVIX [Concomitant]
  11. FOSAMAX [Suspect]
     Dosage: 70 MG ONCE WEEKLY, ORAL
     Route: 048
     Dates: start: 20040226, end: 20050804
  12. BYETTA [Concomitant]
  13. ASPIRIN [Concomitant]

REACTIONS (13)
  - FEMUR FRACTURE [None]
  - FRACTURE NONUNION [None]
  - PAIN IN EXTREMITY [None]
  - PERIPROSTHETIC FRACTURE [None]
  - LOW TURNOVER OSTEOPATHY [None]
  - GAIT DISTURBANCE [None]
  - CELLULITIS [None]
  - BONE DISORDER [None]
  - STRESS FRACTURE [None]
  - FALL [None]
  - COMMINUTED FRACTURE [None]
  - DEVICE BREAKAGE [None]
  - ARTHRALGIA [None]
